APPROVED DRUG PRODUCT: PROCAINAMIDE HYDROCHLORIDE
Active Ingredient: PROCAINAMIDE HYDROCHLORIDE
Strength: 500MG
Dosage Form/Route: TABLET, EXTENDED RELEASE;ORAL
Application: A089840 | Product #001
Applicant: INWOOD LABORATORIES INC SUB FOREST LABORATORIES INC
Approved: Mar 6, 1989 | RLD: No | RS: No | Type: DISCN